FAERS Safety Report 11363660 (Version 1)
Quarter: 2015Q3

REPORT INFORMATION
  Report Type: Spontaneous
  Country: US (occurrence: None)
  Receive Date: 20150810
  Receipt Date: 20150810
  Transmission Date: 20151125
  Serious: Yes (Other)
  Sender: FDA-Public Use
  Company Number: None

PATIENT
  Age: 68 Year
  Sex: Male

DRUGS (1)
  1. XALKORI [Suspect]
     Active Substance: CRIZOTINIB
     Route: 048
     Dates: start: 20150226

REACTIONS (4)
  - Fatigue [None]
  - Constipation [None]
  - Vision blurred [None]
  - Diarrhoea [None]

NARRATIVE: CASE EVENT DATE: 20150807
